FAERS Safety Report 7075550-2 (Version None)
Quarter: 2010Q4

REPORT INFORMATION
  Report Type: 
  Country: None (occurrence: None)
  Receive Date: 20101030
  Receipt Date: 20100928
  Transmission Date: 20110411
  Serious: No
  Sender: FDA-Public Use
  Company Number: US-WYE-H17819310

PATIENT
  Age: 38 Year
  Sex: Female
  Weight: 79.45 kg

DRUGS (5)
  1. ALAVERT [Suspect]
     Indication: LACRIMATION INCREASED
     Route: 048
     Dates: start: 20100916, end: 20100927
  2. ALAVERT [Suspect]
     Indication: SNEEZING
  3. ALAVERT [Suspect]
     Indication: PRURITUS
  4. ALAVERT [Suspect]
     Indication: HEADACHE
  5. ALAVERT [Suspect]
     Indication: RASH MACULAR

REACTIONS (4)
  - CONDITION AGGRAVATED [None]
  - DRUG INEFFECTIVE [None]
  - HYPERSENSITIVITY [None]
  - RASH MACULAR [None]
